FAERS Safety Report 4654593-X (Version None)
Quarter: 2005Q2

REPORT INFORMATION
  Report Type: 
  Country: None (occurrence: None)
  Receive Date: 20050503
  Receipt Date: 20050503
  Transmission Date: 20051028
  Serious: Yes (Hospitalization)
  Sender: FDA-Public Use
  Company Number: None

PATIENT
  Age: 55 Year
  Sex: Female
  Weight: 68.0396 kg

DRUGS (1)
  1. STAVUDINE [Suspect]
     Indication: ANTIVIRAL PROPHYLAXIS
     Dosage: 40MG  BID  ORAL
     Route: 048
     Dates: start: 20040409, end: 20041201

REACTIONS (2)
  - DRUG TOXICITY [None]
  - LACTIC ACIDOSIS [None]
